FAERS Safety Report 11344154 (Version 2)
Quarter: 2015Q3

REPORT INFORMATION
  Report Type: Spontaneous
  Country: US (occurrence: US)
  Receive Date: 20150806
  Receipt Date: 20150904
  Transmission Date: 20151125
  Serious: No
  Sender: FDA-Public Use
  Company Number: US-BAYER-2015-389187

PATIENT
  Age: 86 Year
  Sex: Male
  Weight: 75.28 kg

DRUGS (1)
  1. ALEVE PM [Suspect]
     Active Substance: DIPHENHYDRAMINE HYDROCHLORIDE\NAPROXEN SODIUM
     Indication: ARTHRALGIA
     Dosage: 2 DF, QD
     Route: 048

REACTIONS (4)
  - Vitreous floaters [Unknown]
  - Therapeutic response unexpected [Unknown]
  - Vision blurred [Unknown]
  - Photopsia [Unknown]
